FAERS Safety Report 6565453-1 (Version None)
Quarter: 2010Q1

REPORT INFORMATION
  Report Type: 
  Country: None (occurrence: None)
  Receive Date: 20100201
  Receipt Date: 20100126
  Transmission Date: 20100710
  Serious: Yes (Death)
  Sender: FDA-Public Use
  Company Number: PHHO2009JP04110

PATIENT
  Sex: Male
  Weight: 55 kg

DRUGS (4)
  1. EXELON [Suspect]
     Indication: DEMENTIA ALZHEIMER'S TYPE
     Dosage: LEVEL 1
     Route: 062
     Dates: start: 20080621, end: 20080718
  2. EXELON [Suspect]
     Dosage: LEVEL 2
     Route: 062
     Dates: start: 20080719, end: 20080819
  3. EXELON [Suspect]
     Dosage: LEVEL 3
     Route: 062
     Dates: start: 20080820, end: 20080916
  4. EXELON [Suspect]
     Dosage: LEVEL 4
     Route: 062
     Dates: start: 20080917

REACTIONS (3)
  - ACUTE MYOCARDIAL INFARCTION [None]
  - CIRCULATORY COLLAPSE [None]
  - ELECTROCARDIOGRAM ABNORMAL [None]
